FAERS Safety Report 10665576 (Version 1)
Quarter: 2014Q4

REPORT INFORMATION
  Report Type: Spontaneous
  Country: CH (occurrence: CH)
  Receive Date: 20141219
  Receipt Date: 20141219
  Transmission Date: 20150529
  Serious: Yes (Other)
  Sender: FDA-Public Use
  Company Number: CH-PFIZER INC-2014348146

PATIENT
  Sex: Female
  Weight: 1.65 kg

DRUGS (7)
  1. ZOLOFT [Suspect]
     Active Substance: SERTRALINE HYDROCHLORIDE
     Indication: DEPRESSION
     Dosage: 25 MG, DAILY
     Route: 064
     Dates: start: 20121004, end: 20131004
  2. GYNIPRAL [Concomitant]
     Indication: TOCOLYSIS
     Dosage: UNK
     Route: 064
     Dates: start: 20131130, end: 20131130
  3. PHENOBARBITAL. [Suspect]
     Active Substance: PHENOBARBITAL
     Dosage: 100 MG, UNK
     Route: 064
     Dates: start: 20131130, end: 20131130
  4. TEMESTA [Suspect]
     Active Substance: LORAZEPAM
     Dosage: SINCE 23RD GESTATIONAL WEEK IRREGULARLY, MAXIMUM 1 MG DAILY
     Route: 064
  5. ZOLOFT [Suspect]
     Active Substance: SERTRALINE HYDROCHLORIDE
     Dosage: 37.5 MG, DAILY
     Dates: start: 20131005
  6. ZOLOFT [Suspect]
     Active Substance: SERTRALINE HYDROCHLORIDE
     Dosage: 50 MG, UNK
     Dates: start: 20131105
  7. CELESTONE [Concomitant]
     Active Substance: BETAMETHASONE
     Indication: MATERNAL THERAPY TO ENHANCE FOETAL LUNG MATURITY
     Dosage: 12 MG, SINGLE
     Route: 064
     Dates: start: 20131130, end: 20131130

REACTIONS (3)
  - Neonatal respiratory distress syndrome [Recovered/Resolved]
  - Exposure during pregnancy [Recovered/Resolved]
  - Premature baby [Recovered/Resolved]

NARRATIVE: CASE EVENT DATE: 20130510
